FAERS Safety Report 6207554-3 (Version None)
Quarter: 2009Q2

REPORT INFORMATION
  Report Type: 
  Country: None (occurrence: None)
  Receive Date: 20090528
  Receipt Date: 20090515
  Transmission Date: 20091009
  Serious: Yes (Other)
  Sender: FDA-Public Use
  Company Number: PHHY2009US15735

PATIENT
  Sex: Male
  Weight: 83.6 kg

DRUGS (15)
  1. EXJADE [Suspect]
     Indication: MYELODYSPLASTIC SYNDROME
     Dosage: 1500 MG, QD
     Route: 048
     Dates: start: 20090112, end: 20090410
  2. VIDAZA [Suspect]
     Indication: MYELODYSPLASTIC SYNDROME
     Dosage: DAY 1-5, 8-9 Q 28 DAYS
     Route: 058
     Dates: start: 20080731
  3. ACYCLOVIR [Concomitant]
  4. CHEMOTHERAPEUTICS NOS [Concomitant]
  5. LORTAB [Concomitant]
     Dosage: 5MG/325 Q 6 HR PRN
     Route: 048
  6. LYRICA [Concomitant]
     Dosage: 50 MG, TID
     Route: 048
  7. LISINOPRIL [Concomitant]
     Dosage: 5 MG, QD
  8. SYNTHROID [Concomitant]
     Dosage: 100 MCG DAILY
  9. SEROQUEL [Concomitant]
     Dosage: 50 MG, QHS
     Route: 048
  10. PREVACID [Concomitant]
     Dosage: 30 MG, BID
     Route: 048
  11. VYTORIN [Concomitant]
     Dosage: 10/20
     Route: 048
  12. COUMADIN [Concomitant]
  13. AVANDAMET [Concomitant]
     Dosage: 2/500 DAILY
     Route: 048
  14. KLOR-CON [Concomitant]
     Dosage: 10 MG, QD
     Route: 048
  15. FAMVIR                                  /NET/ [Concomitant]
     Dosage: 500 MG, Q8H
     Route: 048

REACTIONS (16)
  - ABDOMINAL PAIN [None]
  - ABDOMINAL PAIN UPPER [None]
  - COLITIS [None]
  - DEHYDRATION [None]
  - DIARRHOEA [None]
  - DIVERTICULITIS [None]
  - EMOTIONAL DISTRESS [None]
  - HAEMATOCRIT DECREASED [None]
  - HAEMOGLOBIN DECREASED [None]
  - MUCOSAL DRYNESS [None]
  - NAUSEA [None]
  - PLATELET COUNT DECREASED [None]
  - PSEUDOMEMBRANOUS COLITIS [None]
  - PYREXIA [None]
  - SKIN TURGOR DECREASED [None]
  - WHITE BLOOD CELL COUNT DECREASED [None]
